FAERS Safety Report 9502078 (Version 1)
Quarter: 2013Q3

REPORT INFORMATION
  Report Type: Spontaneous
  Country: US (occurrence: US)
  Receive Date: 20130905
  Receipt Date: 20130905
  Transmission Date: 20140515
  Serious: No
  Sender: FDA-Public Use
  Company Number: US-009507513-1308USA014673

PATIENT
  Age: 84 Year
  Sex: Female

DRUGS (4)
  1. ASMANEX TWISTHALER [Suspect]
     Indication: HYPERSENSITIVITY
     Dosage: 220MCG, ONE PUFF TWICE DAILY
     Route: 055
     Dates: start: 201108
  2. ASMANEX TWISTHALER [Suspect]
     Indication: ASTHMA
  3. SYNTHROID [Concomitant]
  4. METFORMIN [Concomitant]

REACTIONS (4)
  - Dyspnoea [Not Recovered/Not Resolved]
  - Malaise [Not Recovered/Not Resolved]
  - Underdose [Unknown]
  - Product quality issue [Unknown]
